FAERS Safety Report 8950982 (Version 5)
Quarter: 2013Q1

REPORT INFORMATION
  Report Type: Report from Study
  Country: CL (occurrence: CL)
  Receive Date: 20121207
  Receipt Date: 20130306
  Transmission Date: 20140127
  Serious: Yes (Life-Threatening, Hospitalization)
  Sender: FDA-Public Use
  Company Number: CL-PFIZER INC-2012260812

PATIENT
  Age: 38 Year
  Sex: Male
  Weight: 103 kg

DRUGS (4)
  1. TOFACITINIB CITRATE [Suspect]
     Indication: PSORIASIS
     Dosage: 10 MG, 2X/DAY
     Route: 048
     Dates: start: 20120331, end: 20120623
  2. TOFACITINIB CITRATE [Suspect]
     Dosage: 5 MG, 2X/DAY
     Route: 048
     Dates: start: 20120624, end: 20121018
  3. ATORVASTATIN [Concomitant]
     Dosage: 20 MG, 1X/DAY
     Route: 048
     Dates: start: 20120331
  4. ENALAPRIL [Concomitant]
     Dosage: 20 MG
     Route: 048
     Dates: start: 20110520

REACTIONS (1)
  - Listeria encephalitis [Recovered/Resolved]
